FAERS Safety Report 8901924 (Version 1)
Quarter: 2012Q4

REPORT INFORMATION
  Report Type: Spontaneous
  Country: US (occurrence: None)
  Receive Date: 20121109
  Receipt Date: 20121109
  Transmission Date: 20130627
  Serious: Yes (Other)
  Sender: FDA-Public Use
  Company Number: None

PATIENT
  Age: 43 Year
  Sex: Female
  Weight: 68.04 kg

DRUGS (2)
  1. AZASITE 1% INSPIRE [Suspect]
     Indication: CONJUNCTIVITIS
     Dosage: 1 drop per eye two X per day; first two days
     Route: 047
     Dates: start: 20121105, end: 20121108
  2. AZASITE 1% INSPIRE [Suspect]
     Indication: CONJUNCTIVITIS
     Dosage: 1 drop per eye once per day; days 3-7
     Route: 047

REACTIONS (1)
  - Eye irritation [None]
